FAERS Safety Report 5725038-3 (Version None)
Quarter: 2008Q2

REPORT INFORMATION
  Report Type: 
  Country: None (occurrence: None)
  Receive Date: 20080429
  Receipt Date: 20080418
  Transmission Date: 20081010
  Serious: Yes (Life-Threatening)
  Sender: FDA-Public Use
  Company Number: OMPQ-NO-0803S-0137

PATIENT
  Age: 59 Year
  Sex: Female

DRUGS (2)
  1. OMNIPAQUE 140 [Suspect]
     Indication: APPENDICITIS
     Dosage: 100 ML, SINGLE DOSE, I.V.
     Route: 042
     Dates: start: 20080122, end: 20080122
  2. CEFOTIAM HYDROCHLORIDE (PANSPORIN) [Concomitant]

REACTIONS (7)
  - BLOOD BILIRUBIN INCREASED [None]
  - BLOOD PRESSURE ABNORMAL [None]
  - BLOOD PRESSURE FLUCTUATION [None]
  - DIALYSIS [None]
  - HAEMOLYSIS [None]
  - NEPHROGENIC ANAEMIA [None]
  - RENAL FAILURE ACUTE [None]
